FAERS Safety Report 22019614 (Version 2)
Quarter: 2023Q1

REPORT INFORMATION
  Report Type: Spontaneous
  Country: IT (occurrence: IT)
  Receive Date: 20230222
  Receipt Date: 20230228
  Transmission Date: 20230418
  Serious: Yes (Other)
  Sender: FDA-Public Use
  Company Number: IT-ALKEM LABORATORIES LIMITED-IT-ALKEM-2023-01674

PATIENT
  Age: 35 Year
  Sex: Female

DRUGS (1)
  1. AZATHIOPRINE [Suspect]
     Active Substance: AZATHIOPRINE
     Indication: Immunosuppressant drug therapy
     Dosage: UNK
     Route: 065

REACTIONS (11)
  - Ascites [Recovering/Resolving]
  - Atypical mycobacterial infection [Recovering/Resolving]
  - Lymphadenitis bacterial [Recovering/Resolving]
  - Osteomyelitis [Recovering/Resolving]
  - Enteritis infectious [Recovering/Resolving]
  - Hypogammaglobulinaemia [Unknown]
  - Chronic hepatitis [Unknown]
  - Diarrhoea [Recovering/Resolving]
  - Lymphopenia [Unknown]
  - Hypoalbuminaemia [Unknown]
  - Lymphangiectasia intestinal [Unknown]
